FAERS Safety Report 17958686 (Version 1)
Quarter: 2020Q2

REPORT INFORMATION
  Report Type: Spontaneous
  Country: US (occurrence: US)
  Receive Date: 20200629
  Receipt Date: 20200629
  Transmission Date: 20200714
  Serious: No
  Sender: FDA-Public Use
  Company Number: US-PFIZER INC-2020246635

PATIENT
  Age: 77 Year
  Sex: Female

DRUGS (3)
  1. LATANOPROST. [Suspect]
     Active Substance: LATANOPROST
     Dosage: ONE DROP IN BOTH EYES AT BEDTIME
     Route: 047
     Dates: start: 20200510
  2. LOSARTAN. [Concomitant]
     Active Substance: LOSARTAN
     Indication: BLOOD PRESSURE ABNORMAL
     Dosage: 50 MG, 2X/DAY
     Dates: start: 201912
  3. LATANOPROST. [Suspect]
     Active Substance: LATANOPROST
     Indication: GLAUCOMA
     Dosage: ONE DROP IN BOTH EYES AT BEDTIME
     Route: 047
     Dates: start: 20200510

REACTIONS (11)
  - Drug ineffective [Unknown]
  - Intentional dose omission [Unknown]
  - Blood glucose increased [Unknown]
  - Foreign body sensation in eyes [Unknown]
  - Pupillary disorder [Unknown]
  - Blood pressure decreased [Unknown]
  - Vision blurred [Not Recovered/Not Resolved]
  - Visual impairment [Unknown]
  - Eye irritation [Unknown]
  - Eye colour change [Unknown]
  - Fatigue [Unknown]
